FAERS Safety Report 16387565 (Version 1)
Quarter: 2019Q2

REPORT INFORMATION
  Report Type: Spontaneous
  Country: TR (occurrence: TR)
  Receive Date: 20190604
  Receipt Date: 20190604
  Transmission Date: 20190711
  Serious: Yes (Death, Hospitalization, Other)
  Sender: FDA-Public Use
  Company Number: TR-CELLTRION INC.-2019TR021631

PATIENT

DRUGS (3)
  1. REMSIMA [Suspect]
     Active Substance: INFLIXIMAB
     Indication: BEHCET^S SYNDROME
     Dosage: 5 MG/KG AT ZERO, TWO, AND SIX WEEKS AND EVERY EIGHT WEEKS THEREAFTER ONE WEEK AFTER ADMISSION
  2. PREDNISOLONE. [Concomitant]
     Active Substance: PREDNISOLONE
     Indication: BEHCET^S SYNDROME
     Dosage: 16 MG, QD, MAINTENANCE TREATMENT
  3. CYCLOPHOSPHAMIDE. [Concomitant]
     Active Substance: CYCLOPHOSPHAMIDE
     Indication: BEHCET^S SYNDROME
     Dosage: 1000 MG/M2, MONTHLY

REACTIONS (10)
  - Pulmonary embolism [Unknown]
  - Pyrexia [Unknown]
  - Off label use [Unknown]
  - Haemoptysis [Fatal]
  - Productive cough [Unknown]
  - Chills [Unknown]
  - Tachycardia [Unknown]
  - Blindness [Unknown]
  - Dyspnoea [Unknown]
  - Tachypnoea [Unknown]
